FAERS Safety Report 14897818 (Version 1)
Quarter: 2018Q2

REPORT INFORMATION
  Report Type: Spontaneous
  Country: US (occurrence: US)
  Receive Date: 20180515
  Receipt Date: 20180515
  Transmission Date: 20180711
  Serious: No
  Sender: FDA-Public Use
  Company Number: PHEH2018US016667

PATIENT
  Sex: Male

DRUGS (1)
  1. VEREGEN [Suspect]
     Active Substance: SINECATECHINS
     Indication: PRODUCT USED FOR UNKNOWN INDICATION
     Dosage: UNK
     Route: 065

REACTIONS (3)
  - Vulvovaginal discomfort [Unknown]
  - Vulvovaginal burning sensation [Unknown]
  - Back pain [Unknown]
